FAERS Safety Report 5526698-2 (Version None)
Quarter: 2007Q4

REPORT INFORMATION
  Report Type: 
  Country: None (occurrence: None)
  Receive Date: 20071123
  Receipt Date: 20061221
  Transmission Date: 20080405
  Serious: Yes (Hospitalization)
  Sender: FDA-Public Use
  Company Number: 2006MP001304

PATIENT
  Age: 60 Year
  Sex: Male
  Weight: 122 kg

DRUGS (6)
  1. GLIADEL [Suspect]
     Indication: GLIOBLASTOMA MULTIFORME
     Dosage: ;X1;ICER
     Dates: start: 20060405
  2. 06-BENZYLGUANINE (06BG) [Suspect]
     Indication: GLIOBLASTOMA MULTIFORME
     Dosage: 30 MG/M**2;QD;IV
     Route: 042
     Dates: start: 20060405, end: 20060410
  3. COUMADIN [Concomitant]
  4. TOPROL-XL [Concomitant]
  5. NEXIUM [Concomitant]
  6. VITAMIN CAP [Concomitant]

REACTIONS (2)
  - ARACHNOIDITIS [None]
  - CONVULSION [None]
